FAERS Safety Report 10213707 (Version 1)
Quarter: 2014Q2

REPORT INFORMATION
  Report Type: Spontaneous
  Country: US (occurrence: None)
  Receive Date: 20140602
  Receipt Date: 20140602
  Transmission Date: 20141212
  Serious: No
  Sender: FDA-Public Use
  Company Number: None

PATIENT
  Age: 82 Year
  Sex: Female
  Weight: 65.77 kg

DRUGS (1)
  1. DUAVEE [Suspect]
     Indication: OSTEOPOROSIS
     Dosage: 1/2 TABLET
     Dates: start: 20140529, end: 20140531

REACTIONS (3)
  - Muscle spasms [None]
  - Muscle tightness [None]
  - Crying [None]
